FAERS Safety Report 9830508 (Version 2)
Quarter: 2014Q2

REPORT INFORMATION
  Report Type: Spontaneous
  Country: FR (occurrence: FR)
  Receive Date: 20140120
  Receipt Date: 20140428
  Transmission Date: 20141212
  Serious: Yes (Death)
  Sender: FDA-Public Use
  Company Number: FR-NAPPMUNDI-GBR-2014-0016874

PATIENT
  Sex: Female
  Weight: 40.6 kg

DRUGS (1)
  1. OXYNORM 10MG/ML SOLUTION INJECTABLE [Suspect]
     Indication: PRODUCT USED FOR UNKNOWN INDICATION
     Dosage: 10 MG/ML
     Route: 051

REACTIONS (1)
  - Malignant neoplasm progression [Fatal]
